FAERS Safety Report 6158337-4 (Version None)
Quarter: 2009Q2

REPORT INFORMATION
  Report Type: 
  Country: None (occurrence: None)
  Receive Date: 20090417
  Receipt Date: 20090407
  Transmission Date: 20091009
  Serious: Yes (Other)
  Sender: FDA-Public Use
  Company Number: ES-BIOGENIDEC-2009BI010818

PATIENT
  Age: 41 Year
  Sex: Female
  Weight: 58 kg

DRUGS (4)
  1. TYSABRI [Suspect]
     Indication: MULTIPLE SCLEROSIS
     Route: 042
     Dates: start: 20090121, end: 20090403
  2. LIORESAL [Concomitant]
     Indication: MUSCLE SPASTICITY
     Route: 048
  3. SERTRALINE HCL [Concomitant]
     Indication: DEPRESSIVE SYMPTOM
     Route: 048
  4. SUAVURET [Concomitant]
     Indication: CONTRACEPTION

REACTIONS (1)
  - SKIN LESION [None]
